FAERS Safety Report 6879158-0 (Version None)
Quarter: 2010Q3

REPORT INFORMATION
  Report Type: 
  Country: None (occurrence: None)
  Receive Date: 20100728
  Receipt Date: 20100716
  Transmission Date: 20110219
  Serious: Yes (Hospitalization)
  Sender: FDA-Public Use
  Company Number: PHHO2010US05513

PATIENT
  Sex: Female

DRUGS (16)
  1. AFINITOR [Suspect]
     Indication: COLORECTAL CANCER METASTATIC
     Dosage: 5 MG, QD
     Route: 048
     Dates: start: 20100201, end: 20100329
  2. AFINITOR [Suspect]
     Dosage: 5 MG EVERY OTHER DAY
     Route: 048
     Dates: start: 20100419
  3. ERBITUX [Suspect]
     Dosage: 344 MG
     Dates: start: 20100201, end: 20100329
  4. ERBITUX [Suspect]
     Dosage: 200 MG/M2
  5. IRINOTECAN HCL [Suspect]
     Indication: COLORECTAL CANCER METASTATIC
     Dosage: 100 MG/M2
     Dates: start: 20001102, end: 20100329
  6. IRINOTECAN HCL [Suspect]
     Dosage: 75 MG/M2
  7. LIDOCAINE [Concomitant]
  8. OXYCODONE [Concomitant]
  9. DEXAMETHASONE [Concomitant]
  10. FENTANYL [Concomitant]
  11. ZOFRAN [Concomitant]
  12. WARFARIN [Concomitant]
  13. ALLFEN [Concomitant]
  14. COMPAZINE [Concomitant]
  15. LISINOPRIL [Concomitant]
  16. COUMADIN [Concomitant]

REACTIONS (4)
  - DEHYDRATION [None]
  - DIARRHOEA [None]
  - HYPOVOLAEMIA [None]
  - RENAL FAILURE ACUTE [None]
